FAERS Safety Report 18991427 (Version 1)
Quarter: 2021Q1

REPORT INFORMATION
  Report Type: Report from Study
  Country: AU (occurrence: AU)
  Receive Date: 20210310
  Receipt Date: 20210310
  Transmission Date: 20210420
  Serious: Yes (Other)
  Sender: FDA-Public Use
  Company Number: AU-BEH-2021127731

PATIENT
  Age: 57 Year
  Sex: Female
  Weight: 66 kg

DRUGS (16)
  1. HIZENTRA [Suspect]
     Active Substance: HUMAN IMMUNOGLOBULIN G
     Dosage: 10G X 2
     Route: 058
     Dates: start: 20210201, end: 20210201
  2. HIZENTRA [Suspect]
     Active Substance: HUMAN IMMUNOGLOBULIN G
     Dosage: 21 GRAMS (105 ML) PER WEEK; INFUSION VIA PUSH METHOD OVER 3.5 HOURS
     Route: 058
     Dates: start: 20210125, end: 20210222
  3. REPATHA [Concomitant]
     Active Substance: EVOLOCUMAB
  4. HIZENTRA [Suspect]
     Active Substance: HUMAN IMMUNOGLOBULIN G
     Dosage: 1 G
     Route: 058
     Dates: start: 20210201, end: 20210201
  5. HIZENTRA [Suspect]
     Active Substance: HUMAN IMMUNOGLOBULIN G
     Dosage: 21 GRAM (105ML), QW
     Route: 058
     Dates: start: 20210201
  6. DURIDE [AMILORIDE HYDROCHLORIDE;FUROSEMIDE] [Concomitant]
  7. EZETROL [Concomitant]
     Active Substance: EZETIMIBE
  8. VALIUM [Concomitant]
     Active Substance: DIAZEPAM
  9. HIZENTRA [Suspect]
     Active Substance: HUMAN IMMUNOGLOBULIN G
     Dosage: 1 G X 1
     Route: 058
     Dates: start: 20210125, end: 20210125
  10. HIZENTRA [Suspect]
     Active Substance: HUMAN IMMUNOGLOBULIN G
     Dosage: 21 GRAM, QW
     Route: 058
     Dates: start: 20210201, end: 20210201
  11. HIZENTRA [Suspect]
     Active Substance: HUMAN IMMUNOGLOBULIN G
     Dosage: 10G X 2
     Route: 058
     Dates: start: 20210125, end: 20210125
  12. ASPIRIN [ACETYLSALICYLIC ACID] [Concomitant]
     Active Substance: ASPIRIN
  13. REMIFEMIN [Concomitant]
     Active Substance: BLACK COHOSH
     Dosage: 10 MILLIGRAM
  14. HIZENTRA [Suspect]
     Active Substance: HUMAN IMMUNOGLOBULIN G
     Indication: CHRONIC INFLAMMATORY DEMYELINATING POLYRADICULONEUROPATHY
     Dosage: 21 GRAM, QW
     Route: 058
     Dates: start: 20210125, end: 20210125
  15. ZOLOFT [Concomitant]
     Active Substance: SERTRALINE HYDROCHLORIDE
     Dosage: 150 MILLIGRAM
  16. PLAVIX [Concomitant]
     Active Substance: CLOPIDOGREL BISULFATE

REACTIONS (11)
  - Infusion site warmth [Recovered/Resolved]
  - Headache [Recovering/Resolving]
  - Diarrhoea [Recovering/Resolving]
  - No adverse event [Unknown]
  - Cellulitis [Recovered/Resolved]
  - Wrong device used [Unknown]
  - Injection site mass [Recovered/Resolved]
  - Injection site erythema [Recovering/Resolving]
  - Injection site swelling [Unknown]
  - Pain [Unknown]
  - Injection site erythema [Recovered/Resolved]

NARRATIVE: CASE EVENT DATE: 20210125
